FAERS Safety Report 8888611 (Version 1)
Quarter: 2012Q4

REPORT INFORMATION
  Report Type: 
  Country: US (occurrence: US)
  Receive Date: 20121106
  Receipt Date: 20121106
  Transmission Date: 20130627
  Serious: Yes (Other)
  Sender: FDA-Public Use
  Company Number: US-PFIZER INC-2012273802

PATIENT
  Age: 87 Year
  Sex: Female

DRUGS (1)
  1. ADVIL [Suspect]
     Indication: BACK PAIN
     Dosage: 200 mg two times a day
     Route: 048
     Dates: start: 20121030, end: 20121030

REACTIONS (1)
  - Haemoptysis [Not Recovered/Not Resolved]
